FAERS Safety Report 4663486-3 (Version None)
Quarter: 2005Q2

REPORT INFORMATION
  Report Type: 
  Country: None (occurrence: None)
  Receive Date: 20050513
  Receipt Date: 20050510
  Transmission Date: 20051028
  Serious: Yes (Hospitalization)
  Sender: FDA-Public Use
  Company Number: 212232

PATIENT
  Age: 15 Year
  Sex: Male

DRUGS (11)
  1. NUTROPIN AQ [Suspect]
     Indication: GROWTH HORMONE DEFICIENCY
     Dosage: 3.1 MG, QD, SUBCUTANEOUS
     Route: 058
     Dates: start: 19980707
  2. ENALAPRIL MALEATE [Concomitant]
  3. RISPERDAL [Concomitant]
  4. LASIX (FUROSEMIDE0 [Concomitant]
  5. DIGOXIN [Concomitant]
  6. ASPIRIN [Concomitant]
  7. ZANTAC [Concomitant]
  8. PULMICORT [Concomitant]
  9. TOBI [Concomitant]
  10. CONCERTA [Concomitant]
  11. CIPROFLOXACIN [Concomitant]

REACTIONS (2)
  - CARDIOVASCULAR DISORDER [None]
  - HAEMORRHAGE [None]
